FAERS Safety Report 8339337-2 (Version None)
Quarter: 2012Q2

REPORT INFORMATION
  Report Type: 
  Country: None (occurrence: None)
  Receive Date: 20120503
  Receipt Date: 20120413
  Transmission Date: 20120825
  Serious: Yes (Other)
  Sender: FDA-Public Use
  Company Number: 2135225-2012-00044

PATIENT
  Age: 58 Year
  Sex: Female

DRUGS (1)
  1. AETHOXYSKLEROL [Suspect]
     Indication: SPIDER VEIN
     Dosage: IV, OVER YEARS
     Route: 042

REACTIONS (4)
  - DIZZINESS [None]
  - CIRCULATORY COLLAPSE [None]
  - NAUSEA [None]
  - OCULAR PEMPHIGOID [None]
